FAERS Safety Report 8279419-7 (Version None)
Quarter: 2012Q2

REPORT INFORMATION
  Report Type: 
  Country: None (occurrence: None)
  Receive Date: 20120412
  Receipt Date: 20120223
  Transmission Date: 20120825
  Serious: No
  Sender: FDA-Public Use
  Company Number: US-ASTRAZENECA-2012SE12754

PATIENT
  Age: 75 Year
  Sex: Female

DRUGS (6)
  1. NEXIUM [Suspect]
     Indication: PROPHYLAXIS AGAINST GASTROINTESTINAL ULCER
     Route: 048
  2. BLOOD PRESSURE MEDICATION [Concomitant]
  3. NEXIUM [Suspect]
     Indication: GASTRIC ULCER
     Route: 048
  4. NEXIUM [Suspect]
     Indication: GASTROOESOPHAGEAL REFLUX DISEASE
     Route: 048
  5. THYROID MEDICATION [Concomitant]
  6. STEROIDS [Concomitant]

REACTIONS (4)
  - ABDOMINAL DISCOMFORT [None]
  - OFF LABEL USE [None]
  - EAR HAEMORRHAGE [None]
  - NASOPHARYNGITIS [None]
